FAERS Safety Report 10330638 (Version 4)
Quarter: 2014Q3

REPORT INFORMATION
  Report Type: Spontaneous
  Country: JP (occurrence: JP)
  Receive Date: 20140722
  Receipt Date: 20140814
  Transmission Date: 20150326
  Serious: Yes (Hospitalization)
  Sender: FDA-Public Use
  Company Number: JP-AMGEN-JPNSP2014054638

PATIENT
  Age: 80 Year
  Sex: Male
  Weight: 44 kg

DRUGS (1)
  1. NESP [Suspect]
     Active Substance: DARBEPOETIN ALFA
     Indication: NEPHROGENIC ANAEMIA
     Dosage: 120 MUG, QWK
     Route: 040
     Dates: start: 20140402

REACTIONS (1)
  - Aplasia pure red cell [Not Recovered/Not Resolved]
